FAERS Safety Report 10613046 (Version 1)
Quarter: 2014Q4

REPORT INFORMATION
  Report Type: Report from Study
  Country: AR (occurrence: AR)
  Receive Date: 20141127
  Receipt Date: 20141127
  Transmission Date: 20150529
  Serious: Yes (Hospitalization, Other)
  Sender: FDA-Public Use
  Company Number: PHHY2014AR155453

PATIENT
  Sex: Female

DRUGS (1)
  1. DIOVAN [Suspect]
     Active Substance: VALSARTAN
     Indication: HYPERTENSION
     Dosage: 80 UKN, QD
     Route: 048
     Dates: end: 20140904

REACTIONS (6)
  - Malaise [Recovered/Resolved]
  - Blood pressure increased [Recovered/Resolved]
  - Coma [Recovered/Resolved]
  - Haemorrhage [Recovered/Resolved]
  - Mediastinitis [Recovered/Resolved]
  - Renal failure [Recovered/Resolved]
